FAERS Safety Report 4752698-6 (Version None)
Quarter: 2005Q3

REPORT INFORMATION
  Report Type: 
  Country: None (occurrence: None)
  Receive Date: 20050823
  Receipt Date: 20050808
  Transmission Date: 20060218
  Serious: Yes (Hospitalization)
  Sender: FDA-Public Use
  Company Number: 2005S1000240

PATIENT
  Age: 47 Year
  Sex: Male
  Weight: 136.0791 kg

DRUGS (12)
  1. ACITRETIN [Suspect]
     Indication: KERATOSIS FOLLICULAR
     Dosage: QD; PO
     Route: 048
     Dates: start: 20020501, end: 20050718
  2. ACITRETIN [Suspect]
     Indication: KERATOSIS FOLLICULAR
     Dosage: 35 MG; QD; PO
     Route: 048
     Dates: start: 20050727
  3. METFORMIM HYDROCHLORIDE [Concomitant]
  4. SIMVASTATIN [Concomitant]
  5. AZITHROMYCIN [Concomitant]
  6. TRICOR [Concomitant]
  7. WARFARIN SODIUM [Concomitant]
  8. PLAVIX [Concomitant]
  9. ALLEGRA [Concomitant]
  10. ASPIRIN [Concomitant]
  11. NITRO [Concomitant]
  12. INSULIN [Concomitant]

REACTIONS (3)
  - MYOCARDIAL INFARCTION [None]
  - PANCREATITIS [None]
  - STAPHYLOCOCCAL INFECTION [None]
